FAERS Safety Report 11981475 (Version 1)
Quarter: 2016Q1

REPORT INFORMATION
  Report Type: Report from Study
  Country: US (occurrence: US)
  Receive Date: 20160130
  Receipt Date: 20160130
  Transmission Date: 20160526
  Serious: Yes (Hospitalization, Other)
  Sender: FDA-Public Use
  Company Number: US-BRISTOL-MYERS SQUIBB COMPANY-BMS-2016-004488

PATIENT
  Age: 74 Year
  Sex: Male
  Weight: 99.2 kg

DRUGS (4)
  1. ELOTUZUMAB [Suspect]
     Active Substance: ELOTUZUMAB
     Indication: PLASMA CELL MYELOMA
     Dosage: 198.4 MG, UNK
     Route: 065
     Dates: start: 20160107, end: 20160114
  2. DEXAMETHASONE. [Suspect]
     Active Substance: DEXAMETHASONE
     Indication: PLASMA CELL MYELOMA
     Dosage: 140 MG, UNK
     Route: 065
     Dates: start: 20160107, end: 20160117
  3. LENALIDOMIDE [Suspect]
     Active Substance: LENALIDOMIDE
     Indication: PLASMA CELL MYELOMA
     Dosage: 325 MG, UNK
     Route: 065
     Dates: start: 20160107, end: 20160119
  4. BORTEZOMIB [Suspect]
     Active Substance: BORTEZOMIB
     Indication: PLASMA CELL MYELOMA
     Dosage: 11.44 MG, UNK
     Route: 065
     Dates: start: 20160107, end: 20160117

REACTIONS (1)
  - Ileus [Unknown]

NARRATIVE: CASE EVENT DATE: 20160120
